FAERS Safety Report 5266117-7 (Version None)
Quarter: 2007Q1

REPORT INFORMATION
  Report Type: 
  Country: None (occurrence: None)
  Receive Date: 20070315
  Receipt Date: 20070307
  Transmission Date: 20070707
  Serious: Yes (Other)
  Sender: FDA-Public Use
  Company Number: JP-AVENTIS-200614447GDDC

PATIENT
  Age: 66 Year
  Sex: Male

DRUGS (4)
  1. RIFADIN [Suspect]
     Indication: PULMONARY TUBERCULOSIS
     Dosage: DOSE: UNKNOWN
     Route: 048
     Dates: start: 20021229, end: 20030201
  2. UNKNOWN DRUG [Concomitant]
     Indication: PULMONARY TUBERCULOSIS
     Dosage: DOSE: UNK
  3. UNKNOWN DRUG [Concomitant]
  4. PYRAMIDE [Concomitant]
     Indication: PULMONARY TUBERCULOSIS
     Dosage: DOSE: UNK
     Route: 048
     Dates: start: 20021229, end: 20030201

REACTIONS (1)
  - PNEUMONIA [None]
